FAERS Safety Report 23642684 (Version 1)
Quarter: 2024Q1

REPORT INFORMATION
  Report Type: Spontaneous
  Country: US (occurrence: US)
  Receive Date: 20240318
  Receipt Date: 20240318
  Transmission Date: 20240410
  Serious: No
  Sender: FDA-Public Use
  Company Number: US-RECORDATI RARE DISEASE INC.-2023008244

PATIENT

DRUGS (1)
  1. ISTURISA [Suspect]
     Active Substance: OSILODROSTAT PHOSPHATE
     Indication: Product used for unknown indication
     Dosage: 7MG DAILY
     Route: 048
     Dates: start: 20210603

REACTIONS (1)
  - Dehydroepiandrosterone decreased [Unknown]

NARRATIVE: CASE EVENT DATE: 20230101
